FAERS Safety Report 6411684-0 (Version None)
Quarter: 2009Q4

REPORT INFORMATION
  Report Type: 
  Country: None (occurrence: None)
  Receive Date: 20091023
  Receipt Date: 20091014
  Transmission Date: 20100525
  Serious: Yes (Hospitalization)
  Sender: FDA-Public Use
  Company Number: PHHY2009MX44607

PATIENT
  Age: 70 Year
  Sex: Female

DRUGS (1)
  1. STALEVO 100 [Suspect]
     Indication: PARKINSON'S DISEASE
     Dosage: 1 DF, PER DAY
     Route: 048
     Dates: start: 20061101, end: 20090901

REACTIONS (3)
  - CARDIAC OPERATION [None]
  - DECREASED APPETITE [None]
  - DYSGEUSIA [None]
